FAERS Safety Report 7252048-X (Version None)
Quarter: 2011Q1

REPORT INFORMATION
  Report Type: 
  Country: None (occurrence: None)
  Receive Date: 20110128
  Receipt Date: 20100119
  Transmission Date: 20110831
  Serious: No
  Sender: FDA-Public Use
  Company Number: US-ABBOTT-10P-163-0620839-00

PATIENT
  Sex: Female
  Weight: 136.2 kg

DRUGS (18)
  1. TOPROL-XL [Concomitant]
     Indication: PRODUCT USED FOR UNKNOWN INDICATION
  2. ZANAFLEX [Concomitant]
     Indication: MUSCLE SPASMS
  3. HUMIRA [Suspect]
     Indication: BEHCET'S SYNDROME
     Route: 058
     Dates: start: 20091001
  4. CYMBALTA [Concomitant]
     Indication: PRODUCT USED FOR UNKNOWN INDICATION
  5. ALLEGRA [Concomitant]
     Indication: HYPERSENSITIVITY
  6. CALCIUM [Concomitant]
     Indication: BONE DISORDER
  7. ZOFRAN ODT [Concomitant]
     Indication: PRODUCT USED FOR UNKNOWN INDICATION
     Dosage: 1-2  TABLETS, 2-3 TIMES PER DAY
  8. LIDOCAINE HYDROCHLORIDE IN PLASTIC CONTAINER [Concomitant]
     Indication: PRODUCT USED FOR UNKNOWN INDICATION
  9. PHENERGAN [Concomitant]
     Indication: PRODUCT USED FOR UNKNOWN INDICATION
     Dosage: 1 IN 6 HOURS, AS REQUIRED
     Route: 054
  10. HUMALOG [Concomitant]
     Indication: DIABETES MELLITUS
     Dosage: INSULIN PUMP
  11. TRIAMTERENE [Concomitant]
     Indication: PRODUCT USED FOR UNKNOWN INDICATION
     Dosage: 37.5/25 MG, DAILY
  12. PREDNISONE [Concomitant]
     Indication: PRODUCT USED FOR UNKNOWN INDICATION
  13. EVOVAX [Concomitant]
     Indication: SALIVA ALTERED
  14. OPANA ER [Concomitant]
     Indication: PAIN
  15. COZAAR [Concomitant]
     Indication: HYPERTENSION
  16. NEURONTIN [Concomitant]
     Indication: NEUROPATHY PERIPHERAL
  17. DILAUDID [Concomitant]
     Indication: PRODUCT USED FOR UNKNOWN INDICATION
  18. NEXIUM [Concomitant]
     Indication: PRODUCT USED FOR UNKNOWN INDICATION

REACTIONS (6)
  - INJECTION SITE PAIN [None]
  - PYREXIA [None]
  - MENTAL STATUS CHANGES [None]
  - BEHCET'S SYNDROME [None]
  - PAIN [None]
  - MOUTH ULCERATION [None]
